FAERS Safety Report 8953839 (Version 1)
Quarter: 2012Q4

REPORT INFORMATION
  Report Type: 
  Country: DE (occurrence: DE)
  Receive Date: 20121206
  Receipt Date: 20121206
  Transmission Date: 20130627
  Serious: Yes (Hospitalization)
  Sender: FDA-Public Use
  Company Number: DE-MYLANLABS-2012S1024361

PATIENT
  Age: 82 Year
  Sex: Female

DRUGS (7)
  1. CIPROFLOXACIN [Suspect]
     Indication: URINARY TRACT INFECTION
     Dosage: daily dose: 500 Mg milligram(s) every Day
     Route: 048
     Dates: start: 20120627, end: 20120701
  2. CYMBALTA [Interacting]
     Indication: PRODUCT USED FOR UNKNOWN INDICATION
     Dosage: daily dose: 30 Mg milligram(s) every Day
     Route: 048
     Dates: start: 20120627, end: 20120630
  3. CYMBALTA [Interacting]
     Indication: PRODUCT USED FOR UNKNOWN INDICATION
     Dosage: daily dose: 60 Mg milligram(s) every Day
     Route: 048
     Dates: start: 20120701, end: 20120702
  4. HALDOL [Interacting]
     Indication: PRODUCT USED FOR UNKNOWN INDICATION
     Dosage: daily dose: 0.5 Mg milligram(s) every Day
     Route: 048
     Dates: start: 20120629, end: 20120701
  5. SPASMEX /00376202/ [Concomitant]
     Indication: PRODUCT USED FOR UNKNOWN INDICATION
     Dosage: daily dose: 15 Mg milligram(s) every Day
     Route: 048
     Dates: start: 20120702
  6. CONCOR [Concomitant]
     Indication: PRODUCT USED FOR UNKNOWN INDICATION
     Dosage: daily dose: 5 Mg milligram(s) every Day
     Route: 048
     Dates: start: 20120627
  7. VIGANTOLETTEN [Concomitant]
     Indication: PRODUCT USED FOR UNKNOWN INDICATION
     Dosage: daily dose: 1000 Mg milligram(s) every Day
     Route: 048
     Dates: start: 20120627

REACTIONS (2)
  - Inappropriate antidiuretic hormone secretion [Recovered/Resolved]
  - Drug interaction [Recovered/Resolved]
